FAERS Safety Report 8273884-7 (Version None)
Quarter: 2012Q2

REPORT INFORMATION
  Report Type: 
  Country: None (occurrence: None)
  Receive Date: 20120406
  Receipt Date: 20120406
  Transmission Date: 20120825
  Serious: No
  Sender: FDA-Public Use
  Company Number: None

PATIENT
  Age: 3 Month
  Sex: Female

DRUGS (1)
  1. WELEDA DIAPER CARE [Suspect]
     Indication: DERMATITIS DIAPER
     Dosage: SMALL AMOUNT TOPICALLY AFTER DIAPER CHANGE
     Dates: start: 20120301

REACTIONS (3)
  - RESTLESSNESS [None]
  - SKIN IRRITATION [None]
  - CRYING [None]
